FAERS Safety Report 8607805-1 (Version None)
Quarter: 2012Q3

REPORT INFORMATION
  Report Type: 
  Country: None (occurrence: None)
  Receive Date: 20120821
  Receipt Date: 20120817
  Transmission Date: 20120928
  Serious: Yes (Disabling, Other)
  Sender: FDA-Public Use
  Company Number: PHEH2007US03407

PATIENT
  Sex: Female
  Weight: 74.83 kg

DRUGS (40)
  1. KAYEXALATE [Concomitant]
  2. OMEPRAZOLE [Concomitant]
     Dosage: 20 MG, QD
  3. CELEXA [Concomitant]
  4. METOPROLOL TARTRATE [Concomitant]
     Dosage: 100 MG, BID
  5. SODIUM POLYSTYRENE SULFONATE [Concomitant]
     Dosage: 60 MG, 4 TABS, QD
  6. PEN-VEE K [Concomitant]
  7. STEROIDS NOS [Concomitant]
  8. LIPITOR [Concomitant]
  9. PREVIDENT [Concomitant]
  10. AUGMENTIN '125' [Concomitant]
  11. AMOXICILLIN [Concomitant]
  12. PRILOCAINE HYDROCHLORIDE [Concomitant]
  13. CHEMOTHERAPEUTICS NOS [Concomitant]
  14. MAGNESIUM [Concomitant]
  15. METOCLOPRAMIDE [Concomitant]
     Dosage: 10 MG, TID
  16. LIDOCAINE [Concomitant]
  17. ZOMETA [Suspect]
     Route: 042
  18. NORVASC [Concomitant]
     Dosage: 10 MG, BID
  19. TOPRAL XL [Concomitant]
     Dosage: 50 MG
  20. RENAGEL [Concomitant]
     Dosage: 800 MG
  21. BACTRIM [Concomitant]
     Dosage: 80 MG, BIW
  22. DIOVAN [Concomitant]
     Dosage: 160 MG, BID
  23. CALCIUM CARBONATE [Concomitant]
     Dosage: 400 MG, QID
  24. METHADONE HYDROCHLORIDE [Concomitant]
  25. PROGRAF [Concomitant]
     Dosage: 1 MG, QID
  26. AREDIA [Suspect]
     Route: 042
  27. LORTAB [Concomitant]
     Dosage: 7.5 MG, PRN
  28. MINOXIDIL [Concomitant]
  29. CHLORHEXIDINE GLUCONATE [Concomitant]
  30. EPINEPHRINE [Concomitant]
  31. NEPHRO-VITE [Concomitant]
  32. CELLCEPT [Concomitant]
  33. PREDNISONE [Concomitant]
  34. ROCALTROL [Concomitant]
  35. THALIDOMIDE [Concomitant]
     Dosage: 50 MG, QID
  36. OXYCONTIN [Concomitant]
     Dosage: 10 MG
  37. LYRICA [Concomitant]
  38. MIRALAX [Concomitant]
  39. MYCELEX [Concomitant]
  40. SENSIPAR [Concomitant]
     Dosage: 30 MG, QOD

REACTIONS (72)
  - SWELLING [None]
  - DENTAL CARIES [None]
  - ANAEMIA [None]
  - CHOLECYSTITIS [None]
  - BLOOD GLUCOSE DECREASED [None]
  - NEOPLASM MALIGNANT [None]
  - BLOOD POTASSIUM INCREASED [None]
  - URINARY INCONTINENCE [None]
  - ACUTE LEUKAEMIA [None]
  - OEDEMA [None]
  - GINGIVAL RECESSION [None]
  - HAEMORRHOIDS [None]
  - EROSIVE OESOPHAGITIS [None]
  - BLOOD CALCIUM DECREASED [None]
  - DEPRESSION [None]
  - EXCORIATION [None]
  - CHANGE OF BOWEL HABIT [None]
  - BACK PAIN [None]
  - LYMPHADENOPATHY [None]
  - OSTEONECROSIS OF JAW [None]
  - HIATUS HERNIA [None]
  - IMPAIRED GASTRIC EMPTYING [None]
  - DIARRHOEA [None]
  - HEADACHE [None]
  - COUGH [None]
  - DISCOMFORT [None]
  - GENERAL PHYSICAL HEALTH DETERIORATION [None]
  - HAEMATEMESIS [None]
  - COLONIC POLYP [None]
  - BARRETT'S OESOPHAGUS [None]
  - AZOTAEMIA [None]
  - RENAL FAILURE ACUTE [None]
  - BUNION [None]
  - VITAMIN D DEFICIENCY [None]
  - SKIN LESION [None]
  - OSTEITIS [None]
  - INFECTION [None]
  - LOOSE TOOTH [None]
  - ANXIETY [None]
  - DECREASED INTEREST [None]
  - BONE DISORDER [None]
  - TOOTH ABSCESS [None]
  - ULCER [None]
  - GASTROOESOPHAGEAL REFLUX DISEASE [None]
  - DERMATITIS [None]
  - HYPERCALCAEMIA [None]
  - ERYTHEMA [None]
  - ABDOMINAL PAIN UPPER [None]
  - GALLBLADDER CHOLESTEROLOSIS [None]
  - ARTERIOVENOUS FISTULA THROMBOSIS [None]
  - FOOT DEFORMITY [None]
  - POST HERPETIC NEURALGIA [None]
  - CELLULITIS [None]
  - MAGNESIUM DEFICIENCY [None]
  - INFLUENZA LIKE ILLNESS [None]
  - PAIN IN JAW [None]
  - DYSGEUSIA [None]
  - PAIN [None]
  - DIVERTICULUM [None]
  - GASTRITIS ATROPHIC [None]
  - JAW FRACTURE [None]
  - ARTHRITIS [None]
  - HYPERPARATHYROIDISM [None]
  - ORAL CAVITY FISTULA [None]
  - GASTRITIS [None]
  - ARTERIOVENOUS GRAFT ANEURYSM [None]
  - ARTERIOVENOUS FISTULA SITE COMPLICATION [None]
  - DYSPEPSIA [None]
  - MELANOCYTIC NAEVUS [None]
  - HYPERCHOLESTEROLAEMIA [None]
  - DEVICE RELATED INFECTION [None]
  - PARAESTHESIA [None]
